FAERS Safety Report 7360605-5 (Version None)
Quarter: 2011Q1

REPORT INFORMATION
  Report Type: 
  Country: None (occurrence: None)
  Receive Date: 20110318
  Receipt Date: 20110311
  Transmission Date: 20110831
  Serious: Yes (Hospitalization, Other)
  Sender: FDA-Public Use
  Company Number: US-B.I. PHARMACEUTICALS,INC./RIDGEFIELD-2010-BP-04039BP

PATIENT
  Sex: Female
  Weight: 127 kg

DRUGS (5)
  1. NEXIUM [Concomitant]
     Indication: GASTRITIS
     Route: 048
     Dates: start: 20100327
  2. COLACE [Concomitant]
     Indication: CONSTIPATION PROPHYLAXIS
     Route: 048
     Dates: start: 20100327
  3. PLACEBO [Suspect]
     Indication: EMBOLISM VENOUS
     Route: 048
     Dates: start: 20100330, end: 20100405
  4. SENNA [Concomitant]
     Indication: CONSTIPATION PROPHYLAXIS
     Route: 048
     Dates: start: 20100331
  5. DABIGATRAN [Suspect]
     Indication: PULMONARY EMBOLISM
     Dosage: 300 MG
     Route: 048
     Dates: start: 20100405, end: 20100406

REACTIONS (5)
  - VOMITING [None]
  - GASTROOESOPHAGEAL REFLUX DISEASE [None]
  - SYSTEMIC LUPUS ERYTHEMATOSUS [None]
  - DIARRHOEA [None]
  - SYNCOPE [None]
